FAERS Safety Report 8796488 (Version 1)
Quarter: 2012Q4

REPORT INFORMATION
  Report Type: 
  Country: US (occurrence: US)
  Receive Date: 20120919
  Receipt Date: 20120919
  Transmission Date: 20130627
  Serious: No
  Sender: FDA-Public Use
  Company Number: US-ASTRAZENECA-2012SE65155

PATIENT
  Age: 49 Year
  Sex: Female
  Weight: 78.1 kg

DRUGS (15)
  1. SYMBICORT PMDI [Suspect]
     Route: 055
  2. ZESTRIL [Suspect]
     Route: 048
  3. ZESTRIL [Suspect]
     Dosage: PRINIVIL
     Route: 065
  4. PRILOSEC [Suspect]
     Route: 048
  5. PRILOSEC OTC [Suspect]
     Route: 048
  6. TYLENOL EXTRA STRENGTH [Concomitant]
  7. PROVENTIL HFA [Concomitant]
  8. VENTOLIN HFA [Concomitant]
  9. COMBIVENT [Concomitant]
  10. FLEXERIL [Concomitant]
  11. PROZAC [Concomitant]
  12. ADVAIR [Concomitant]
  13. EC NAPROSYN [Concomitant]
  14. DELTASONE [Concomitant]
  15. ULTRAM [Concomitant]

REACTIONS (4)
  - Back pain [Unknown]
  - Depression [Unknown]
  - Hypertension [Unknown]
  - Stress [Unknown]
